FAERS Safety Report 9134808 (Version 2)
Quarter: 2013Q1

REPORT INFORMATION
  Report Type: Spontaneous
  Country: NL (occurrence: NL)
  Receive Date: 20130304
  Receipt Date: 20130322
  Transmission Date: 20140127
  Serious: Yes (Other)
  Sender: FDA-Public Use
  Company Number: NL-PFIZER INC-2013072686

PATIENT
  Age: 50 Year
  Sex: Female
  Weight: 75 kg

DRUGS (3)
  1. VENLAFAXINE HYDROCHLORIDE [Suspect]
     Indication: DEPRESSION
     Dosage: 75 MG, 1X/DAY
     Dates: start: 20130131, end: 2013
  2. VENLAFAXINE HYDROCHLORIDE [Suspect]
     Dosage: 150 MG, 1X/DAY
     Dates: start: 2013, end: 20130213
  3. ASCAL [Concomitant]
     Dosage: 80 MG, UNK

REACTIONS (3)
  - Suicidal ideation [Recovered/Resolved with Sequelae]
  - Anxiety [Recovered/Resolved with Sequelae]
  - Crying [Recovered/Resolved with Sequelae]
